FAERS Safety Report 8607543-5 (Version None)
Quarter: 2012Q3

REPORT INFORMATION
  Report Type: 
  Country: None (occurrence: None)
  Receive Date: 20120821
  Receipt Date: 20120810
  Transmission Date: 20120928
  Serious: Yes (Hospitalization)
  Sender: FDA-Public Use
  Company Number: US-BAYER-2012-026599

PATIENT
  Age: 32 Year
  Sex: Female
  Weight: 65.76 kg

DRUGS (7)
  1. CIPROFLOXACIN [Concomitant]
     Dosage: 500 MG, UNK
     Route: 048
     Dates: start: 20100323
  2. YASMIN [Suspect]
     Dosage: UNK
     Dates: start: 20050601, end: 20070731
  3. BUPROPION HCL [Concomitant]
     Dosage: 150 MG, UNK,SR/TAB
     Route: 048
     Dates: start: 20100113
  4. YASMIN [Suspect]
     Indication: CONTRACEPTION
     Dosage: UNK
     Dates: start: 20030901, end: 20041201
  5. YASMIN [Suspect]
     Dosage: UNK
     Dates: start: 20071003, end: 20080601
  6. HYDROCODONE BITARTRATE AND ACETAMINOPHEN [Concomitant]
  7. DROSPIRENONE AND ETHINYL ESTRADIOL [Suspect]
     Indication: CONTRACEPTION
     Dosage: UNK
     Dates: start: 20080701, end: 20100412

REACTIONS (6)
  - CEREBRAL VENOUS THROMBOSIS [None]
  - CONVULSION [None]
  - PAIN [None]
  - EMOTIONAL DISTRESS [None]
  - INJURY [None]
  - CEREBRAL INFARCTION [None]
